FAERS Safety Report 5482938-X (Version None)
Quarter: 2007Q4

REPORT INFORMATION
  Report Type: 
  Country: None (occurrence: None)
  Receive Date: 20071011
  Receipt Date: 20070926
  Transmission Date: 20080405
  Serious: Yes (Other)
  Sender: FDA-Public Use
  Company Number: JP-GENENTECH-249123

PATIENT
  Sex: Male

DRUGS (5)
  1. BEVACIZUMAB [Suspect]
     Indication: RECTAL CANCER RECURRENT
     Dosage: 5 MG/KG, 1 PER 1 DAY
     Route: 041
     Dates: start: 20070731
  2. FLUOROURACIL [Suspect]
     Indication: RECTAL CANCER RECURRENT
     Dosage: 400 MG/M2, 1 PER 1 DAY
     Dates: start: 20070731
  3. IRINOTECAN HCL [Suspect]
     Indication: RECTAL CANCER RECURRENT
     Dosage: 150 MG/M2, 1 PER 1 DAY
     Route: 041
     Dates: start: 20070731
  4. ISOVORIN [Suspect]
     Indication: RECTAL CANCER RECURRENT
     Dosage: 100 MG/M2, 1 PER 1 DAY
     Route: 041
     Dates: start: 20070731
  5. MAGMITT [Suspect]
     Indication: DRUG USE FOR UNKNOWN INDICATION
     Dosage: 330 MG, QD
     Route: 048
     Dates: start: 20070731, end: 20070809

REACTIONS (7)
  - ASPARTATE AMINOTRANSFERASE INCREASED [None]
  - BLOOD ALKALINE PHOSPHATASE INCREASED [None]
  - BLOOD BILIRUBIN INCREASED [None]
  - CHOLECYSTITIS ACUTE [None]
  - ENTEROCOLITIS [None]
  - HEPATIC FUNCTION ABNORMAL [None]
  - WHITE BLOOD CELL COUNT DECREASED [None]
